FAERS Safety Report 5155717-0 (Version None)
Quarter: 2006Q4

REPORT INFORMATION
  Report Type: 
  Country: None (occurrence: None)
  Receive Date: 20061113
  Receipt Date: 20061031
  Transmission Date: 20070319
  Serious: Yes (Other)
  Sender: FDA-Public Use
  Company Number: 2006133213

PATIENT
  Age: 72 Year
  Sex: Female
  Weight: 77.1115 kg

DRUGS (7)
  1. ROGAINE [Suspect]
     Indication: ALOPECIA
     Dosage: 1 ML TWICE DAILY, TOPICAL
     Route: 061
     Dates: start: 20000101
  2. METOPROLOL TARTRATE [Concomitant]
  3. ROSIGLITAZONE MALEATE [Concomitant]
  4. ASASANTIN (ACETYLSALICYLIC ACID, DIPYRAIDAMOLE) [Concomitant]
  5. GLICLAZIDE [Concomitant]
  6. ATORVASTATIN CALCIUM [Concomitant]
  7. RAMIPRIL [Concomitant]

REACTIONS (3)
  - ATRIAL FIBRILLATION [None]
  - DIZZINESS [None]
  - SELF-MEDICATION [None]
